FAERS Safety Report 18237050 (Version 2)
Quarter: 2020Q3

REPORT INFORMATION
  Report Type: Spontaneous
  Country: FR (occurrence: FR)
  Receive Date: 20200907
  Receipt Date: 20200924
  Transmission Date: 20201103
  Serious: Yes (Other)
  Sender: FDA-Public Use
  Company Number: FR-UCBSA-2020030703

PATIENT
  Age: 32 Year
  Sex: Male
  Weight: 75 kg

DRUGS (4)
  1. MICROPAKINE [Concomitant]
     Active Substance: VALPROATE SODIUM
     Indication: EPILEPSY
     Dosage: 1000 MILLIGRAM, 2X/DAY (BID)
     Route: 048
  2. MINISINTROM [Concomitant]
     Active Substance: ACENOCOUMAROL
     Indication: COAGULATION FACTOR INCREASED
     Dosage: 2 MILLIGRAM, ONCE DAILY (QD)
  3. BRIVIACT [Suspect]
     Active Substance: BRIVARACETAM
     Indication: EPILEPSY
     Dosage: 50 MILLIGRAM, 2X/DAY (BID)
     Route: 048
     Dates: start: 20200701
  4. TEGRETOL [Concomitant]
     Active Substance: CARBAMAZEPINE
     Indication: EPILEPSY
     Dosage: 400MG IN MORNING 500MG IN EVENING
     Route: 048

REACTIONS (3)
  - Gamma-glutamyltransferase increased [Unknown]
  - International normalised ratio increased [Recovering/Resolving]
  - Haematoma [Recovered/Resolved]

NARRATIVE: CASE EVENT DATE: 2020
